FAERS Safety Report 25235965 (Version 1)
Quarter: 2025Q2

REPORT INFORMATION
  Report Type: Spontaneous
  Country: US (occurrence: US)
  Receive Date: 20250424
  Receipt Date: 20250424
  Transmission Date: 20250717
  Serious: Yes (Other)
  Sender: SANDOZ
  Company Number: US-SANDOZ-SDZ2025US025433

PATIENT
  Sex: Female

DRUGS (10)
  1. AZITHROMYCIN [Suspect]
     Active Substance: AZITHROMYCIN
     Indication: Pulmonary cavitation
     Route: 065
  2. AZITHROMYCIN [Suspect]
     Active Substance: AZITHROMYCIN
     Indication: Pneumonia bacterial
  3. ARIKAYCE [Suspect]
     Active Substance: AMIKACIN
     Indication: Pulmonary cavitation
     Route: 065
  4. ARIKAYCE [Suspect]
     Active Substance: AMIKACIN
     Indication: Pneumonia bacterial
  5. ETHAMBUTOL [Suspect]
     Active Substance: ETHAMBUTOL HYDROCHLORIDE
     Indication: Pulmonary cavitation
     Route: 065
  6. ETHAMBUTOL [Suspect]
     Active Substance: ETHAMBUTOL HYDROCHLORIDE
     Indication: Pneumonia bacterial
  7. LINEZOLID [Suspect]
     Active Substance: LINEZOLID
     Indication: Pulmonary cavitation
     Route: 065
  8. LINEZOLID [Suspect]
     Active Substance: LINEZOLID
     Indication: Pneumonia bacterial
  9. OMADACYCLINE [Suspect]
     Active Substance: OMADACYCLINE
     Indication: Pulmonary cavitation
     Route: 065
  10. OMADACYCLINE [Suspect]
     Active Substance: OMADACYCLINE
     Indication: Pneumonia bacterial

REACTIONS (2)
  - Neuropathy peripheral [Unknown]
  - Toxicity to various agents [Unknown]
